FAERS Safety Report 7328004-X (Version None)
Quarter: 2011Q1

REPORT INFORMATION
  Report Type: 
  Country: None (occurrence: None)
  Receive Date: 20110303
  Receipt Date: 20110222
  Transmission Date: 20110831
  Serious: Yes (Hospitalization)
  Sender: FDA-Public Use
  Company Number: BE-JNJFOC-20110207299

PATIENT
  Sex: Male
  Weight: 90 kg

DRUGS (3)
  1. IMURAN [Concomitant]
     Route: 065
  2. PANTOZOL [Concomitant]
     Route: 065
  3. REMICADE [Suspect]
     Indication: COLITIS
     Route: 042

REACTIONS (1)
  - RECTAL HAEMORRHAGE [None]
